FAERS Safety Report 10306785 (Version 1)
Quarter: 2014Q3

REPORT INFORMATION
  Report Type: Spontaneous
  Country: US (occurrence: US)
  Receive Date: 20140715
  Receipt Date: 20140715
  Transmission Date: 20150326
  Serious: Yes (Life-Threatening, Hospitalization)
  Sender: FDA-Public Use
  Company Number: US-ROXANE LABORATORIES, INC.-2014-RO-01052RO

PATIENT
  Age: 50 Year
  Sex: Female

DRUGS (1)
  1. LITHIUM CARBONATE. [Suspect]
     Active Substance: LITHIUM CARBONATE
     Indication: BIPOLAR DISORDER
     Route: 065

REACTIONS (4)
  - Bundle branch block left [Recovered/Resolved]
  - Hyperthyroidism [Recovered/Resolved]
  - Atrial tachycardia [Recovered/Resolved]
  - Arteriospasm coronary [Recovered/Resolved]
